FAERS Safety Report 19655037 (Version 1)
Quarter: 2021Q3

REPORT INFORMATION
  Report Type: Spontaneous
  Country: US (occurrence: US)
  Receive Date: 20210804
  Receipt Date: 20210804
  Transmission Date: 20211014
  Serious: No
  Sender: FDA-Public Use
  Company Number: US-GLENMARK PHARMACEUTICALS-2020GMK051107

PATIENT

DRUGS (12)
  1. PRAMIPEXOLE DIHYDROCHLORIDE. [Suspect]
     Active Substance: PRAMIPEXOLE DIHYDROCHLORIDE
     Indication: RESTLESS LEGS SYNDROME
     Dosage: 4 DOSAGE FORM, QD (4 TABLETS A DAY)
     Route: 048
     Dates: end: 202012
  2. LYRICA [Concomitant]
     Active Substance: PREGABALIN
     Indication: PAIN
     Dosage: 50 MILLIGRAM, QID [4 TIMES A DAY; START DATE: 10 OR MORE YEARS AGO]
     Route: 048
  3. ATORVASTATIN [Concomitant]
     Active Substance: ATORVASTATIN
     Indication: BLOOD CHOLESTEROL
     Dosage: 10 MG, OD (START DATE: 10 YEARS AGO)
     Route: 048
  4. ENALAPRIL MALEATE. [Concomitant]
     Active Substance: ENALAPRIL MALEATE
     Indication: BLOOD PRESSURE ABNORMAL
     Dosage: 5 MILLIGRAM, OD (USUALLY AT EVENING, BEDTIME)
     Route: 048
     Dates: start: 202010
  5. TURMERIC [CURCUMA LONGA] [Concomitant]
     Active Substance: HERBALS\TURMERIC
     Indication: VITAMIN SUPPLEMENTATION
     Dosage: UNK, (START DATE: OVER A YEAR)
     Route: 048
  6. PRAMIPEXOLE DIHYDROCHLORIDE. [Suspect]
     Active Substance: PRAMIPEXOLE DIHYDROCHLORIDE
     Indication: RESTLESS LEGS SYNDROME
     Dosage: 0.125 MILLIGRAM, QID (4 TABLETS A DAY BY MOUTH)
     Route: 048
     Dates: start: 202012
  7. TRAMADOL. [Concomitant]
     Active Substance: TRAMADOL
     Indication: PAIN
     Dosage: 50 MG, ONE AND A HALF A DAY (START DATE: 10 YEARS AGO)
     Route: 048
  8. VITAMIN D3 [Concomitant]
     Active Substance: CHOLECALCIFEROL
     Indication: VITAMIN SUPPLEMENTATION
     Dosage: UNK, (START DATE: OVER A YEAR)
     Route: 048
  9. GINKGO BILOBA [Concomitant]
     Active Substance: GINKGO
     Indication: VITAMIN SUPPLEMENTATION
     Dosage: UNK, (START DATE: OVER A YEAR)
     Route: 048
  10. MELATONIN [Concomitant]
     Active Substance: MELATONIN
     Indication: SLEEP DISORDER
     Dosage: 10 MG, OD (START DATE: A YEAR OR 2 YEARS AGO)
     Route: 048
  11. VITAMIN C [Concomitant]
     Active Substance: ASCORBIC ACID
     Indication: VITAMIN SUPPLEMENTATION
     Dosage: UNK, (START DATE: OVER A YEAR)
     Route: 048
  12. SUPER B COMPLEX [AMINOBENZOIC ACID;BIOTIN;CALCIUM PANTOTHENATE;CHOLINE [Concomitant]
     Indication: VITAMIN SUPPLEMENTATION
     Dosage: UNK, (START DATE: OVER A YEAR)
     Route: 048

REACTIONS (10)
  - Muscular weakness [Unknown]
  - Product storage error [Unknown]
  - Product dose omission issue [Unknown]
  - Axillary pain [Unknown]
  - Drug withdrawal syndrome [Unknown]
  - Headache [Unknown]
  - Malaise [Unknown]
  - Therapeutic product effect incomplete [Unknown]
  - Muscle spasms [Not Recovered/Not Resolved]
  - Insomnia [Recovering/Resolving]

NARRATIVE: CASE EVENT DATE: 202012
